FAERS Safety Report 9172482 (Version 1)
Quarter: 2012Q4

REPORT INFORMATION
  Report Type: 
  Country: US (occurrence: US)
  Receive Date: 20120911
  Receipt Date: 20120911
  Transmission Date: 20130627
  Serious: No
  Sender: FDA-Public Use
  Company Number: US-ASTRAZENECA-2012SE57621

PATIENT
  Age: 62 Year
  Sex: Female
  Weight: 59 kg

DRUGS (10)
  1. NEXIUM [Suspect]
     Indication: GASTROOESOPHAGEAL REFLUX DISEASE
     Route: 048
     Dates: start: 201201, end: 201205
  2. NEXIUM [Suspect]
     Indication: GASTROOESOPHAGEAL REFLUX DISEASE
     Route: 048
     Dates: start: 201205, end: 20120812
  3. PANTOPRAZOLE [Concomitant]
  4. TRAMADOL [Concomitant]
     Indication: PAIN
  5. GABAPENTIN [Concomitant]
     Indication: INTERVERTEBRAL DISC PROTRUSION
  6. ETODOLAC [Concomitant]
     Indication: ARTHRITIS
  7. SYMVISTATIN [Concomitant]
     Indication: BLOOD CHOLESTEROL INCREASED
  8. ALENDRONATE [Concomitant]
     Indication: OSTEOPOROSIS
  9. ZOLPIDEM [Concomitant]
     Indication: SLEEP DISORDER
  10. AMITRIPTYLINE [Concomitant]

REACTIONS (8)
  - Abnormal loss of weight [Recovered/Resolved]
  - Gastrooesophageal reflux disease [Unknown]
  - Dyspepsia [Unknown]
  - Dyspepsia [Unknown]
  - Gastric disorder [Unknown]
  - Intentional drug misuse [Unknown]
  - Off label use [Unknown]
  - Abdominal discomfort [Recovered/Resolved]
